FAERS Safety Report 7153654-3 (Version None)
Quarter: 2010Q4

REPORT INFORMATION
  Report Type: 
  Country: None (occurrence: None)
  Receive Date: 20101213
  Receipt Date: 20101202
  Transmission Date: 20110411
  Serious: Yes (Death, Other)
  Sender: FDA-Public Use
  Company Number: US-BAXTER-2010BH029736

PATIENT
  Age: 40 Year
  Sex: Male

DRUGS (4)
  1. VINORELBINE TARTRATE [Suspect]
     Indication: HODGKIN'S DISEASE
     Route: 042
  2. GEMCITABINE [Suspect]
     Indication: HODGKIN'S DISEASE
     Route: 065
  3. DOXORUBICIN HCL [Suspect]
     Indication: HODGKIN'S DISEASE
     Route: 065
  4. SGN-30 [Suspect]
     Indication: HODGKIN'S DISEASE
     Route: 065

REACTIONS (3)
  - INTERSTITIAL LUNG DISEASE [None]
  - LUNG INFECTION PSEUDOMONAL [None]
  - PNEUMONIA BACTERIAL [None]
